FAERS Safety Report 8363763-9 (Version None)
Quarter: 2012Q2

REPORT INFORMATION
  Report Type: 
  Country: None (occurrence: None)
  Receive Date: 20120515
  Receipt Date: 20120515
  Transmission Date: 20120825
  Serious: Yes (Other)
  Sender: FDA-Public Use
  Company Number: None

PATIENT
  Age: 76 Year
  Sex: Female
  Weight: 77.1115 kg

DRUGS (1)
  1. SUMATRIPTAN [Suspect]
     Indication: MIGRAINE
     Dosage: 50 MG 1 TABET DAILY PO
     Route: 048
     Dates: start: 20110119, end: 20120514

REACTIONS (1)
  - NIGHTMARE [None]
